FAERS Safety Report 16459897 (Version 4)
Quarter: 2019Q3

REPORT INFORMATION
  Report Type: Spontaneous
  Country: BR (occurrence: BR)
  Receive Date: 20190620
  Receipt Date: 20190729
  Transmission Date: 20191004
  Serious: Yes (Life-Threatening, Hospitalization)
  Sender: FDA-Public Use
  Company Number: BR-CELGENEUS-BRA-20190607318

PATIENT
  Age: 81 Year
  Sex: Female
  Weight: 58.3 kg

DRUGS (24)
  1. FUROSEMIDE. [Concomitant]
     Active Substance: FUROSEMIDE
     Indication: HYPERTENSION
     Dosage: 40 MILLIGRAM
     Route: 048
     Dates: start: 201902
  2. PRACINOSTAT [Concomitant]
     Active Substance: PRACINOSTAT
     Dosage: 60 MILLIGRAM
     Route: 048
     Dates: start: 201906
  3. SULFAMETHOXAZOLE/TRIMETHOPRIM [Concomitant]
     Active Substance: SULFAMETHOXAZOLE\TRIMETHOPRIM
     Indication: PROPHYLAXIS
     Dosage: 400+80 MG
     Route: 048
     Dates: start: 201902
  4. CAPTOPRIL. [Concomitant]
     Active Substance: CAPTOPRIL
     Indication: HYPERTENSION
     Dosage: 50 MILLIGRAM
     Route: 048
     Dates: start: 201902
  5. BUDESONIDE/FORMOTEROL FUMARATE [Concomitant]
     Active Substance: BUDESONIDE\FORMOTEROL FUMARATE
     Indication: PROPHYLAXIS
     Dosage: 12/400 MCG
     Route: 055
     Dates: start: 201902
  6. ALLOPURINOL. [Concomitant]
     Active Substance: ALLOPURINOL
     Indication: PROPHYLAXIS
     Dosage: 300 MILLIGRAM
     Route: 048
     Dates: start: 201902
  7. CEFTAZIDIME. [Concomitant]
     Active Substance: CEFTAZIDIME
     Indication: SEPSIS
     Dosage: 3000 MILLIGRAM
     Route: 041
     Dates: start: 20190610
  8. PACKED RED BLOOD CELLS [Concomitant]
     Active Substance: HUMAN RED BLOOD CELL
     Indication: PRODUCT USED FOR UNKNOWN INDICATION
     Dosage: 16 UNITS
     Route: 065
     Dates: start: 201906
  9. MEROPENEM. [Concomitant]
     Active Substance: MEROPENEM
     Indication: SEPSIS
     Dosage: 6 GRAM
     Route: 041
     Dates: start: 20190518, end: 20190526
  10. CHLORHEXIDINE [Concomitant]
     Active Substance: CHLORHEXIDINE
     Indication: MOUTH ULCERATION
     Dosage: 30 MILLILITER
     Route: 048
     Dates: start: 20190521, end: 20190610
  11. BICARBONATE [Concomitant]
     Active Substance: SODIUM BICARBONATE
     Indication: PRODUCT USED FOR UNKNOWN INDICATION
     Dosage: 70 MILLILITER
     Route: 041
     Dates: start: 20190614
  12. VIDAZA [Suspect]
     Active Substance: AZACITIDINE
     Indication: ACUTE MYELOID LEUKAEMIA
     Dosage: 75 MILLIGRAM/SQ. METER
     Route: 058
     Dates: start: 20190116, end: 20190516
  13. ACICLOVIR [Concomitant]
     Active Substance: ACYCLOVIR
     Indication: PROPHYLAXIS
     Dosage: 600 MILLIGRAM
     Route: 048
     Dates: start: 201902
  14. FENOTEROL +IPRATROPIUM [Concomitant]
     Indication: DYSPNOEA
     Dosage: 6/30
     Route: 055
     Dates: start: 20190515, end: 20190618
  15. TRAMADOL. [Concomitant]
     Active Substance: TRAMADOL
     Indication: MOUTH ULCERATION
     Dosage: 200 MILLIGRAM
     Route: 041
     Dates: start: 20190516, end: 20190530
  16. LACTULOSE. [Concomitant]
     Active Substance: LACTULOSE
     Indication: CONSTIPATION
     Dosage: 40 MILLILITER
     Route: 048
     Dates: start: 20190528, end: 20190529
  17. DOCUSATE+BISACODYL [Concomitant]
     Indication: CONSTIPATION
     Dosage: 65 MILLIGRAM
     Route: 048
     Dates: start: 20190528, end: 20190529
  18. PRACINOSTAT [Concomitant]
     Active Substance: PRACINOSTAT
     Indication: ACUTE MYELOID LEUKAEMIA
     Dosage: 60 MILLIGRAM
     Route: 048
     Dates: start: 20190116, end: 20190515
  19. TRIMETHOPRIM. [Concomitant]
     Active Substance: TRIMETHOPRIM
     Indication: PROPHYLAXIS
     Dosage: 25 MILLIGRAM
     Route: 048
     Dates: start: 201902
  20. OMEPRAZOLE. [Concomitant]
     Active Substance: OMEPRAZOLE
     Indication: GASTROINTESTINAL HAEMORRHAGE
     Dosage: 40 MILLIGRAM
     Route: 048
     Dates: start: 201902
  21. BUDESONIDE. [Concomitant]
     Active Substance: BUDESONIDE
     Indication: DYSPNOEA
     Dosage: 800 MICROGRAM
     Route: 055
     Dates: start: 201902
  22. METOCLOPRAMIDE. [Concomitant]
     Active Substance: METOCLOPRAMIDE
     Indication: NAUSEA
     Dosage: 30 MILLIGRAM
     Route: 048
     Dates: start: 20190403
  23. NYSTATIN. [Concomitant]
     Active Substance: NYSTATIN
     Indication: ANTIFUNGAL PROPHYLAXIS
     Dosage: 20 MILLILITER
     Route: 048
     Dates: start: 20190529
  24. POTASSIUM CHLORIDE. [Concomitant]
     Active Substance: POTASSIUM CHLORIDE
     Indication: HYPOKALAEMIA
     Dosage: 30 MILLILITER
     Route: 041
     Dates: start: 20190616

REACTIONS (1)
  - Sepsis [Recovered/Resolved]

NARRATIVE: CASE EVENT DATE: 20190610
